FAERS Safety Report 10198024 (Version 1)
Quarter: 2014Q2

REPORT INFORMATION
  Report Type: Spontaneous
  Country: US (occurrence: US)
  Receive Date: 20140527
  Receipt Date: 20140527
  Transmission Date: 20141212
  Serious: No
  Sender: FDA-Public Use
  Company Number: US-NOVEN-13US006811

PATIENT
  Sex: Female
  Weight: 49.89 kg

DRUGS (4)
  1. DAYTRANA [Suspect]
     Indication: AUTISM
     Dosage: 30 MG, UNK
     Route: 062
  2. ZOLOFT [Concomitant]
     Indication: POST-TRAUMATIC STRESS DISORDER
     Dosage: 100 MG, UNK
     Route: 048
  3. CATAPRES                           /00171101/ [Concomitant]
     Indication: AUTISM
     Dosage: 3 MG, UNK
     Route: 062
  4. METHYLPHENIDATE [Concomitant]
     Indication: AUTISM
     Dosage: 10 MG, UNK
     Route: 048

REACTIONS (2)
  - Off label use [Not Recovered/Not Resolved]
  - No adverse event [None]
